FAERS Safety Report 6061574-0 (Version None)
Quarter: 2009Q1

REPORT INFORMATION
  Report Type: 
  Country: None (occurrence: None)
  Receive Date: 20090130
  Receipt Date: 20090130
  Transmission Date: 20090719
  Serious: No
  Sender: FDA-Public Use
  Company Number: None

PATIENT
  Age: 24 Year
  Sex: Male
  Weight: 103.42 kg

DRUGS (3)
  1. IBUPROFEN [Suspect]
     Indication: HEADACHE
     Dosage: 800 MG TID PO
     Route: 048
     Dates: start: 20080529, end: 20081219
  2. IBUPROFEN [Suspect]
     Indication: JOINT INJURY
     Dosage: 800 MG TID PO
     Route: 048
     Dates: start: 20080529, end: 20081219
  3. IBUPROFEN [Suspect]
     Indication: PAIN
     Dosage: 800 MG TID PO
     Route: 048
     Dates: start: 20080529, end: 20081219

REACTIONS (2)
  - BLOOD CREATINE INCREASED [None]
  - BLOOD UREA INCREASED [None]
